FAERS Safety Report 11247222 (Version 1)
Quarter: 2015Q3

REPORT INFORMATION
  Report Type: Report from Study
  Country: CN (occurrence: CN)
  Receive Date: 20150708
  Receipt Date: 20150708
  Transmission Date: 20151125
  Serious: Yes (Other)
  Sender: FDA-Public Use
  Company Number: CN-BAYER-2015-360758

PATIENT
  Age: 62 Year

DRUGS (1)
  1. NEXAVAR [Suspect]
     Active Substance: SORAFENIB
     Indication: HEPATOCELLULAR CARCINOMA
     Dosage: 400 MG, BID
     Route: 048

REACTIONS (7)
  - Diarrhoea [None]
  - Decreased appetite [None]
  - Anal ulcer [None]
  - Mouth ulceration [None]
  - Skin exfoliation [None]
  - Scrotal ulcer [None]
  - Alopecia [None]
